FAERS Safety Report 20208176 (Version 2)
Quarter: 2021Q4

REPORT INFORMATION
  Report Type: Report from Study
  Country: GB (occurrence: GB)
  Receive Date: 20211220
  Receipt Date: 20211229
  Transmission Date: 20220303
  Serious: Yes (Death)
  Sender: FDA-Public Use
  Company Number: GB-BIOMARINAP-GB-2013-100326

PATIENT
  Age: 71 Year
  Sex: Male
  Weight: 77.4 kg

DRUGS (1)
  1. TALAZOPARIB [Suspect]
     Active Substance: TALAZOPARIB
     Indication: Acute myeloid leukaemia
     Dosage: 2000 UG, 1X/DAY
     Route: 048
     Dates: start: 20130117, end: 20130205

REACTIONS (1)
  - Neutropenic sepsis [Fatal]

NARRATIVE: CASE EVENT DATE: 20130204
